FAERS Safety Report 6548524-5 (Version None)
Quarter: 2010Q1

REPORT INFORMATION
  Report Type: 
  Country: None (occurrence: None)
  Receive Date: 20100124
  Receipt Date: 20090904
  Transmission Date: 20100710
  Serious: No
  Sender: FDA-Public Use
  Company Number: US-ALLERGAN-0911117US

PATIENT
  Sex: Female

DRUGS (12)
  1. RESTASIS [Suspect]
     Indication: DRY EYE
     Dosage: UNK
     Route: 047
     Dates: start: 20080101
  2. RESTASIS [Suspect]
     Dosage: UNK
     Route: 047
     Dates: end: 20090801
  3. LISINOPRIL AND HYDROCHLOROTHIAZIDE [Concomitant]
     Indication: HYPERTENSION
     Dosage: 20/12.5 MG
  4. TOPROL-XL [Concomitant]
     Indication: HYPERTENSION
     Dosage: 25 MG, QPM
  5. LYRICA [Concomitant]
     Dosage: 50 MG, QAM
  6. ACIPHEX [Concomitant]
     Dosage: 20 MG, QAM
  7. KLONOPIN [Concomitant]
     Dosage: 0.5 MG, QHS
  8. XANAX [Concomitant]
     Dosage: 0.25 MG, TID
  9. ATIVAN [Concomitant]
     Dosage: 2 MG, Q4-6H
  10. MULTI-VITAMINS [Concomitant]
     Dosage: UNK
  11. PHENERGAN HCL [Concomitant]
     Dosage: 25 MG, Q4-6H PRN
  12. DARVOCET-N 100 [Concomitant]
     Indication: PAIN
     Dosage: 100/650 MG Q4H

REACTIONS (2)
  - EYE IRRITATION [None]
  - EYE PAIN [None]
